FAERS Safety Report 8839399 (Version 1)
Quarter: 2012Q4

REPORT INFORMATION
  Report Type: Spontaneous
  Country: US (occurrence: None)
  Receive Date: 20121012
  Receipt Date: 20121012
  Transmission Date: 20130627
  Serious: Yes (Other)
  Sender: FDA-Public Use
  Company Number: None

PATIENT
  Age: 62 Year
  Sex: Male
  Weight: 97.8 kg

DRUGS (4)
  1. OMNIPAQUE [Suspect]
     Route: 042
     Dates: start: 20120917
  2. OMNIPAQUE [Suspect]
  3. IODIXANOL [Suspect]
     Route: 042
     Dates: start: 20120917
  4. IODIXANOL [Suspect]

REACTIONS (4)
  - Drug hypersensitivity [None]
  - Erythema [None]
  - Pruritus [None]
  - Rash generalised [None]
